FAERS Safety Report 4496280-7 (Version None)
Quarter: 2004Q3

REPORT INFORMATION
  Report Type: 
  Country: None (occurrence: None)
  Receive Date: 20040921
  Receipt Date: 20040405
  Transmission Date: 20050211
  Serious: Yes (Hospitalization)
  Sender: FDA-Public Use
  Company Number: 163-20785-04040155

PATIENT
  Age: 53 Year
  Sex: Male
  Weight: 94.5 kg

DRUGS (13)
  1. THALOMID [Suspect]
     Indication: METASTASES TO CENTRAL NERVOUS SYSTEM
     Dosage: 400 MG, DAILY, ORAL
     Route: 048
     Dates: start: 20040314, end: 20040331
  2. THALOMID [Suspect]
     Indication: NON-SMALL CELL LUNG CANCER
     Dosage: 400 MG, DAILY, ORAL
     Route: 048
     Dates: start: 20040314, end: 20040331
  3. THALOMID [Suspect]
     Indication: METASTASES TO CENTRAL NERVOUS SYSTEM
     Dosage: 400 MG, DAILY, ORAL
     Route: 048
     Dates: start: 20040402, end: 20040412
  4. THALOMID [Suspect]
     Indication: NON-SMALL CELL LUNG CANCER
     Dosage: 400 MG, DAILY, ORAL
     Route: 048
     Dates: start: 20040402, end: 20040412
  5. RADIATION THERAPY (CAPSULES) [Suspect]
     Indication: NON-SMALL CELL LUNG CANCER
     Dosage: 2.5 GY PER DAY, DAYS 1-5 QWEEK
  6. CELEBREX [Concomitant]
  7. DECADRON [Concomitant]
  8. DILANTIN [Concomitant]
  9. LIPITOR [Concomitant]
  10. NAPROSYN [Concomitant]
  11. PERCOCET [Concomitant]
  12. PREVACID [Concomitant]
  13. COUMADIN [Concomitant]

REACTIONS (6)
  - ATELECTASIS [None]
  - DEEP VEIN THROMBOSIS [None]
  - DYSPNOEA [None]
  - HYPOXIA [None]
  - PNEUMONIA [None]
  - PYREXIA [None]
